FAERS Safety Report 17365838 (Version 1)
Quarter: 2020Q1

REPORT INFORMATION
  Report Type: Spontaneous
  Country: GB (occurrence: GB)
  Receive Date: 20200204
  Receipt Date: 20200204
  Transmission Date: 20200409
  Serious: Yes (Death)
  Sender: FDA-Public Use
  Company Number: GB-ABBVIE-20K-167-3262516-00

PATIENT
  Age: 78 Year
  Sex: Male

DRUGS (1)
  1. VENETOCLAX. [Suspect]
     Active Substance: VENETOCLAX
     Indication: CHRONIC LYMPHOCYTIC LEUKAEMIA RECURRENT
     Dosage: TOTAL OF 4 CYCLES
     Route: 048

REACTIONS (2)
  - Drug ineffective [Unknown]
  - Haemorrhage intracranial [Fatal]
